FAERS Safety Report 19799429 (Version 2)
Quarter: 2021Q4

REPORT INFORMATION
  Report Type: Spontaneous
  Country: CN (occurrence: CN)
  Receive Date: 20210907
  Receipt Date: 20211001
  Transmission Date: 20220303
  Serious: Yes (Hospitalization)
  Sender: FDA-Public Use
  Company Number: 2021A702515

PATIENT
  Age: 59 Year
  Sex: Female

DRUGS (4)
  1. SYMBICORT [Suspect]
     Active Substance: BUDESONIDE\FORMOTEROL FUMARATE DIHYDRATE
     Indication: Asthma
     Dosage: TWO TIMES PER DAY, ONE INHALATION AT A TIME, IF THE PATIENT FELT A LITTLE BIT COMFORTABLE, THERE ...
     Route: 055
  2. UNSPECIFIED INGREDIENT [Concomitant]
     Active Substance: UNSPECIFIED INGREDIENT
  3. AMOXICILLIN [Concomitant]
     Active Substance: AMOXICILLIN
  4. PENICILLIN [Concomitant]
     Active Substance: PENICILLIN

REACTIONS (3)
  - Fungal pharyngitis [Recovering/Resolving]
  - Asthma [Recovering/Resolving]
  - Wrong technique in device usage process [Unknown]

NARRATIVE: CASE EVENT DATE: 20170101
